FAERS Safety Report 5212556-X (Version None)
Quarter: 2007Q1

REPORT INFORMATION
  Report Type: 
  Country: None (occurrence: None)
  Receive Date: 20070118
  Receipt Date: 20070109
  Transmission Date: 20070707
  Serious: Yes (Hospitalization)
  Sender: FDA-Public Use
  Company Number: JP-MERCK-0612USA04163

PATIENT
  Age: 60 Year
  Sex: Male

DRUGS (6)
  1. DECADRON [Suspect]
     Indication: NEPHROTIC SYNDROME
     Route: 048
     Dates: end: 20061001
  2. DECADRON [Suspect]
     Route: 048
  3. DECADRON [Suspect]
     Route: 048
  4. DECADRON [Suspect]
     Route: 048
  5. NEORAL [Concomitant]
     Route: 065
  6. PROGRAF [Concomitant]
     Route: 065

REACTIONS (5)
  - ARTHRALGIA [None]
  - BLOOD GLUCOSE INCREASED [None]
  - LIVER FUNCTION TEST ABNORMAL [None]
  - NEPHROTIC SYNDROME [None]
  - VISION BLURRED [None]
